FAERS Safety Report 7122931-4 (Version None)
Quarter: 2010Q4

REPORT INFORMATION
  Report Type: 
  Country: None (occurrence: None)
  Receive Date: 20101124
  Receipt Date: 20101120
  Transmission Date: 20110411
  Serious: Yes (Death, Other)
  Sender: FDA-Public Use
  Company Number: US-CELGENEUS-163-21880-10112517

PATIENT
  Sex: Male

DRUGS (7)
  1. REVLIMID [Suspect]
     Indication: MULTIPLE MYELOMA
     Route: 048
     Dates: start: 20100524, end: 20100528
  2. DEXAMETHASONE [Concomitant]
     Indication: MULTIPLE MYELOMA
     Route: 065
     Dates: start: 20100501, end: 20100501
  3. COUMADIN [Concomitant]
     Indication: PROPHYLAXIS
     Route: 065
  4. PREVACID [Concomitant]
     Route: 065
  5. ULORIC [Concomitant]
     Route: 065
  6. SYNTHROID [Concomitant]
     Route: 065
  7. DURAGESIC-100 [Concomitant]
     Route: 062

REACTIONS (4)
  - MULTIPLE MYELOMA [None]
  - PNEUMONIA [None]
  - RENAL FAILURE CHRONIC [None]
  - TACHYARRHYTHMIA [None]
